FAERS Safety Report 8179850-4 (Version None)
Quarter: 2012Q1

REPORT INFORMATION
  Report Type: 
  Country: None (occurrence: None)
  Receive Date: 20120229
  Receipt Date: 20110627
  Transmission Date: 20120608
  Serious: Yes (Death)
  Sender: FDA-Public Use
  Company Number: UTC-015423

PATIENT
  Age: 63 Year
  Sex: Male
  Weight: 88.64 kg

DRUGS (2)
  1. TRACLEER [Concomitant]
  2. TYVASO [Suspect]
     Indication: PULMONARY HYPERTENSION
     Dosage: 216 MCG (54 MCG, 4 IN 1 D), INHALATION
     Route: 055
     Dates: start: 20101130

REACTIONS (1)
  - DEATH [None]
